FAERS Safety Report 7329409-3 (Version None)
Quarter: 2011Q1

REPORT INFORMATION
  Report Type: 
  Country: None (occurrence: None)
  Receive Date: 20110228
  Receipt Date: 20110228
  Transmission Date: 20110831
  Serious: Yes (Hospitalization)
  Sender: FDA-Public Use
  Company Number: None

PATIENT
  Sex: Female
  Weight: 112.5 kg

DRUGS (10)
  1. LAPATINIB 250MG GLAXOSMITHKLINE [Suspect]
     Indication: BREAST CANCER METASTATIC
     Dosage: 1500MG QD PO
     Route: 048
     Dates: start: 20100628, end: 20110225
  2. SYNTHROID [Concomitant]
  3. METOPROLOL -TOPROL- [Concomitant]
  4. ZOLOFT [Concomitant]
  5. ASPIRIN [Concomitant]
  6. ENTERIC [Concomitant]
  7. WARFARIN [Concomitant]
  8. DEMADEX [Concomitant]
  9. LIPOSOMAL DOXORUBICIN CENTOCOR OTHRO BIOTECH PRODUCTS [Suspect]
     Indication: BREAST CANCER METASTATIC
     Dosage: 45MG/M2 Q 28 DAYS IV
     Route: 042
     Dates: start: 20100706, end: 20110207
  10. LIPITOR [Concomitant]

REACTIONS (1)
  - LOCALISED INFECTION [None]
